FAERS Safety Report 14632166 (Version 1)
Quarter: 2018Q1

REPORT INFORMATION
  Report Type: Spontaneous
  Country: US (occurrence: US)
  Receive Date: 20180313
  Receipt Date: 20180313
  Transmission Date: 20180509
  Serious: No
  Sender: FDA-Public Use
  Company Number: US-TEVA-2018-US-857681

PATIENT
  Sex: Female

DRUGS (2)
  1. AZITHROMYCIN ANHYDROUS. [Suspect]
     Active Substance: AZITHROMYCIN ANHYDROUS
     Dosage: 30 ML
  2. AMOXICILLIN. [Suspect]
     Active Substance: AMOXICILLIN
     Dosage: 400/5ML, 75 ML

REACTIONS (1)
  - Urticaria [Unknown]
